FAERS Safety Report 24005388 (Version 3)
Quarter: 2024Q3

REPORT INFORMATION
  Report Type: Spontaneous
  Country: GB (occurrence: GB)
  Receive Date: 20240624
  Receipt Date: 20240731
  Transmission Date: 20241017
  Serious: Yes (Hospitalization)
  Sender: PFIZER
  Company Number: GB-PFM-2024-03597

PATIENT
  Age: 22 Year
  Sex: Male
  Weight: 113 kg

DRUGS (8)
  1. BINIMETINIB [Suspect]
     Active Substance: BINIMETINIB
     Indication: Craniopharyngioma
     Dosage: 45 MG, BID (2/DAY)
     Route: 048
     Dates: start: 20240604, end: 20240613
  2. BINIMETINIB [Suspect]
     Active Substance: BINIMETINIB
     Indication: Off label use
     Dosage: 30 MG, BID (2/DAY)
     Route: 048
     Dates: start: 20240621, end: 20240712
  3. HYDROCORTISONE [Concomitant]
     Active Substance: HYDROCORTISONE\HYDROCORTISONE ACETATE
     Indication: Hypopituitarism
     Dosage: 40 MG, DAILY
     Route: 048
  4. HYDROCORTISONE [Concomitant]
     Active Substance: HYDROCORTISONE\HYDROCORTISONE ACETATE
     Dosage: 80 MG, QD (1/DAY)
     Route: 048
  5. DESMOPRESSIN [Concomitant]
     Active Substance: DESMOPRESSIN
     Indication: Hypopituitarism
     Dosage: 250 UNITS DAILY
     Route: 065
  6. LEVOTHYROXINE [Concomitant]
     Active Substance: LEVOTHYROXINE\LEVOTHYROXINE SODIUM
     Indication: Hypopituitarism
     Dosage: 200 UG, DAILY
     Route: 048
  7. NEBIDO [TESTOSTERONE UNDECANOATE] [Concomitant]
     Indication: Hypopituitarism
     Dosage: 1000 MG, EVERY 3 MONTHS (EVERY 12 WEEKS)
     Route: 065
  8. CHOLECALCIFEROL [Concomitant]
     Active Substance: CHOLECALCIFEROL
     Indication: Vitamin D deficiency
     Dosage: UNK, WEEKLY (ONCE IN 7 DAYS) 10,000 UNITS WEEKLY (EVERY SATURDAY)
     Route: 048

REACTIONS (7)
  - Epistaxis [Recovered/Resolved]
  - Syncope [Recovered/Resolved]
  - Rash [Recovered/Resolved]
  - Condition aggravated [Unknown]
  - Diarrhoea [Recovered/Resolved]
  - Body temperature increased [Recovered/Resolved]
  - Off label use [Unknown]

NARRATIVE: CASE EVENT DATE: 20240604
